FAERS Safety Report 15188339 (Version 2)
Quarter: 2019Q1

REPORT INFORMATION
  Report Type: Spontaneous
  Country: US (occurrence: US)
  Receive Date: 20180724
  Receipt Date: 20190225
  Transmission Date: 20190417
  Serious: Yes (Hospitalization)
  Sender: FDA-Public Use
  Company Number: US-EMD SERONO-235673K09USA

PATIENT
  Sex: Female

DRUGS (7)
  1. VITAMIN D                          /00107901/ [Concomitant]
     Active Substance: ERGOCALCIFEROL
     Dates: start: 2009
  2. REBIF [Suspect]
     Active Substance: INTERFERON BETA-1A
     Indication: MULTIPLE SCLEROSIS
     Route: 058
     Dates: start: 20070119
  3. IMITREX [Concomitant]
     Active Substance: SUMATRIPTAN SUCCINATE
     Indication: MIGRAINE
     Dosage: AS NEEDED
  4. CALCIUM                            /00060701/ [Concomitant]
     Active Substance: CALCIUM
     Indication: VITAMIN SUPPLEMENTATION
  5. VITAMIN D                          /00107901/ [Concomitant]
     Active Substance: ERGOCALCIFEROL
     Indication: VITAMIN D DECREASED
     Dates: end: 2009
  6. EFFEXOR [Concomitant]
     Active Substance: VENLAFAXINE HYDROCHLORIDE
     Indication: HOT FLUSH
     Dates: start: 2008, end: 200905
  7. MEGAVITAMINE N [Concomitant]
     Indication: VITAMIN SUPPLEMENTATION

REACTIONS (5)
  - Breast cancer female [Recovered/Resolved]
  - Injection site mass [Unknown]
  - Lymphoedema [Not Recovered/Not Resolved]
  - Skin lesion [Unknown]
  - Metastases to lymph nodes [Recovered/Resolved]

NARRATIVE: CASE EVENT DATE: 2007
